FAERS Safety Report 22173388 (Version 1)
Quarter: 2023Q2

REPORT INFORMATION
  Report Type: Spontaneous
  Country: TW (occurrence: TW)
  Receive Date: 20230404
  Receipt Date: 20230404
  Transmission Date: 20230721
  Serious: Yes (Other)
  Sender: FDA-Public Use
  Company Number: TW-ELI_LILLY_AND_COMPANY-TW202303013855

PATIENT
  Age: 47 Year
  Sex: Male

DRUGS (2)
  1. CYRAMZA [Suspect]
     Active Substance: RAMUCIRUMAB
     Indication: Lung neoplasm malignant
     Dosage: UNK, UNKNOWN
     Route: 042
  2. XGEVA [Suspect]
     Active Substance: DENOSUMAB
     Indication: Lung neoplasm malignant
     Dosage: UNK, UNKNOWN
     Route: 065

REACTIONS (5)
  - Blindness unilateral [Unknown]
  - Retinal artery occlusion [Unknown]
  - Pseudomembranous colitis [Unknown]
  - Hyperlipidaemia [Unknown]
  - Hypertension [Unknown]
